FAERS Safety Report 10139361 (Version 1)
Quarter: 2014Q2

REPORT INFORMATION
  Report Type: Spontaneous
  Country: US (occurrence: US)
  Receive Date: 20140429
  Receipt Date: 20140429
  Transmission Date: 20141212
  Serious: No
  Sender: FDA-Public Use
  Company Number: US-PFIZER INC-2014117923

PATIENT
  Age: 45 Year
  Sex: Female
  Weight: 126.98 kg

DRUGS (2)
  1. LYRICA [Suspect]
     Indication: SPINAL CORD INJURY
     Dosage: UNK
     Dates: start: 201402, end: 20140426
  2. LEXAPRO [Concomitant]
     Indication: DEPRESSION
     Dosage: 10 MG, DAILY
     Dates: start: 201404

REACTIONS (1)
  - Myalgia [Not Recovered/Not Resolved]
